FAERS Safety Report 12566100 (Version 1)
Quarter: 2016Q3

REPORT INFORMATION
  Report Type: Spontaneous
  Country: US (occurrence: US)
  Receive Date: 20160718
  Receipt Date: 20160718
  Transmission Date: 20161109
  Serious: No
  Sender: FDA-Public Use
  Company Number: US-GLAXOSMITHKLINE-US2016GSK098583

PATIENT
  Sex: Male

DRUGS (1)
  1. TANZEUM [Suspect]
     Active Substance: ALBIGLUTIDE
     Indication: PRODUCT USED FOR UNKNOWN INDICATION
     Dosage: UNK
     Dates: end: 20160706

REACTIONS (12)
  - Muscle spasms [Unknown]
  - Dyschezia [Unknown]
  - Underweight [Unknown]
  - Muscle strain [Unknown]
  - Change of bowel habit [Unknown]
  - Gastrointestinal sounds abnormal [Unknown]
  - Gastric hypomotility [Unknown]
  - Drug dose omission [Unknown]
  - Constipation [Unknown]
  - Back pain [Unknown]
  - Rectal tenesmus [Unknown]
  - Intentional product misuse [Unknown]

NARRATIVE: CASE EVENT DATE: 20160706
